FAERS Safety Report 8353917 (Version 2)
Quarter: 2012Q4

REPORT INFORMATION
  Report Type: 
  Country: US (occurrence: US)
  Receive Date: 20120125
  Receipt Date: 20120912
  Transmission Date: 20130627
  Serious: Yes (Hospitalization)
  Sender: FDA-Public Use
  Company Number: US-ACTELION-A-US2010-36509

PATIENT
  Age: 46 Year
  Sex: Male

DRUGS (6)
  1. TRACLEER [Suspect]
     Indication: PULMONARY ARTERIAL HYPERTENSION
     Dosage: 125 mg, bid
     Route: 048
     Dates: start: 20080808
  2. DIURETICS [Suspect]
  3. REVATIO [Concomitant]
  4. BETA BLOCKING AGENTS [Concomitant]
  5. ADCIRCA [Concomitant]
  6. LASIX [Concomitant]

REACTIONS (5)
  - Pulmonary oedema [Unknown]
  - Blood potassium decreased [Recovered/Resolved]
  - Fluid retention [Recovering/Resolving]
  - Feeling abnormal [Recovered/Resolved]
  - Oedema [Unknown]
